FAERS Safety Report 7018071-5 (Version None)
Quarter: 2010Q3

REPORT INFORMATION
  Report Type: 
  Country: None (occurrence: None)
  Receive Date: 20100928
  Receipt Date: 20100922
  Transmission Date: 20110219
  Serious: Yes (Other)
  Sender: FDA-Public Use
  Company Number: PHHY2010DE63431

PATIENT
  Age: 44 Year
  Sex: Male

DRUGS (2)
  1. LEPONEX [Suspect]
     Indication: PSYCHOTIC DISORDER
     Dosage: 200 MG/D
     Route: 048
     Dates: start: 19960101
  2. LAXATIVA [Concomitant]
     Dosage: WHEN NEEDED

REACTIONS (4)
  - BLOOD PRESSURE INCREASED [None]
  - ERYTHEMA [None]
  - RENAL FAILURE [None]
  - SKIN REACTION [None]
